FAERS Safety Report 9912522 (Version 1)
Quarter: 2014Q1

REPORT INFORMATION
  Report Type: Report from Study
  Country: US (occurrence: US)
  Receive Date: 20140220
  Receipt Date: 20140220
  Transmission Date: 20141002
  Serious: Yes (Other)
  Sender: FDA-Public Use
  Company Number: US-ROCHE-1280496

PATIENT
  Age: 49 Year
  Sex: Female

DRUGS (9)
  1. AVASTIN [Suspect]
     Indication: DIABETIC RETINOPATHY
     Route: 050
     Dates: start: 20130313
  2. AVASTIN [Suspect]
     Indication: DIABETIC RETINAL OEDEMA
     Route: 050
     Dates: start: 20130321
  3. AVASTIN [Suspect]
     Indication: DIABETIC RETINAL OEDEMA
     Route: 050
     Dates: start: 20130417
  4. AVASTIN [Suspect]
     Route: 050
     Dates: start: 20130429
  5. AVASTIN [Suspect]
     Route: 050
     Dates: start: 20130520
  6. VISINE [Concomitant]
     Dosage: AS NEEDED
     Route: 065
  7. GLIMEPIRIDE [Concomitant]
  8. MEGESTROL [Concomitant]
  9. RIOMET [Concomitant]

REACTIONS (1)
  - Eye irritation [Unknown]
